FAERS Safety Report 5097228-7 (Version None)
Quarter: 2006Q3

REPORT INFORMATION
  Report Type: 
  Country: None (occurrence: None)
  Receive Date: 20060906
  Receipt Date: 20060823
  Transmission Date: 20061208
  Serious: Yes (Other)
  Sender: FDA-Public Use
  Company Number: PHBS2006JP12860

PATIENT
  Age: 56 Year
  Sex: Female

DRUGS (5)
  1. ZOMETA [Suspect]
     Indication: METASTASES TO BONE
     Dosage: 4 MG, UNK
     Route: 065
  2. AREDIA [Suspect]
     Indication: METASTASES TO BONE
     Dosage: 90 MG, UNK
     Route: 042
     Dates: start: 20060301
  3. FURTULON [Concomitant]
     Dosage: 800 MG/D
     Route: 048
     Dates: start: 20060412
  4. HYSRON [Concomitant]
     Dosage: 1200 MG/D
     Route: 048
     Dates: start: 20060412
  5. GASTER D [Concomitant]
     Dosage: 20 MG/D
     Route: 048
     Dates: start: 20060412

REACTIONS (1)
  - OSTEONECROSIS [None]
